FAERS Safety Report 13087090 (Version 1)
Quarter: 2017Q1

REPORT INFORMATION
  Report Type: Report from Study
  Country: US (occurrence: US)
  Receive Date: 20170105
  Receipt Date: 20170105
  Transmission Date: 20170428
  Serious: Yes (Hospitalization, Other)
  Sender: FDA-Public Use
  Company Number: US-BRISTOL-MYERS SQUIBB COMPANY-BMS-2016-111238

PATIENT
  Age: 14 Year
  Sex: Male

DRUGS (1)
  1. NIVOLUMAB [Suspect]
     Active Substance: NIVOLUMAB
     Indication: HEPATOCELLULAR CARCINOMA
     Dosage: 200 MG, Q3WK
     Route: 065
     Dates: end: 20161220

REACTIONS (3)
  - Drug administered to patient of inappropriate age [Unknown]
  - Cerebrovascular accident [Unknown]
  - Product use issue [Unknown]
